FAERS Safety Report 18607231 (Version 1)
Quarter: 2020Q4

REPORT INFORMATION
  Report Type: Spontaneous
  Country: HR (occurrence: HR)
  Receive Date: 20201211
  Receipt Date: 20201211
  Transmission Date: 20210114
  Serious: Yes (Hospitalization)
  Sender: FDA-Public Use
  Company Number: HR-ABBVIE-20K-216-3682977-00

PATIENT
  Age: 65 Year
  Sex: Male

DRUGS (2)
  1. VENCLYXTO [Suspect]
     Active Substance: VENETOCLAX
     Indication: CHRONIC LYMPHOCYTIC LEUKAEMIA
     Dosage: 4TH LINE TH, CONCOMITANT WITH RITUXIMAB, RAMP UP DOSING
     Route: 048
     Dates: start: 201712, end: 201910
  2. VENCLYXTO [Suspect]
     Active Substance: VENETOCLAX
     Route: 048
     Dates: start: 201910

REACTIONS (4)
  - Urosepsis [Recovered/Resolved]
  - Hypogammaglobulinaemia [Unknown]
  - Pneumonia [Recovered/Resolved]
  - Hypogammaglobulinaemia [Unknown]

NARRATIVE: CASE EVENT DATE: 201910
